FAERS Safety Report 22032636 (Version 1)
Quarter: 2023Q1

REPORT INFORMATION
  Report Type: Spontaneous
  Country: US (occurrence: US)
  Receive Date: 20230224
  Receipt Date: 20230224
  Transmission Date: 20230417
  Serious: Yes (Other)
  Sender: FDA-Public Use
  Company Number: US-JNJFOC-20230236214

PATIENT
  Sex: Male

DRUGS (1)
  1. TYLENOL [Suspect]
     Active Substance: ACETAMINOPHEN
     Indication: Product used for unknown indication
     Dosage: TOOK A LOT OF TYLENOL (HALF A BOTTLE OR BOTTLE) ABOUT 20 YEARS AGO
     Route: 065

REACTIONS (2)
  - Liver injury [Recovered/Resolved]
  - Product use issue [Recovered/Resolved]
